FAERS Safety Report 5468131-5 (Version None)
Quarter: 2007Q3

REPORT INFORMATION
  Report Type: 
  Country: None (occurrence: None)
  Receive Date: 20070926
  Receipt Date: 20070919
  Transmission Date: 20080115
  Serious: Yes (Other)
  Sender: FDA-Public Use
  Company Number: US-JNJFOC-20070904243

PATIENT
  Age: 27 Year
  Sex: Male

DRUGS (2)
  1. LEVAQUIN [Suspect]
     Indication: INFLUENZA
     Route: 065
  2. THERAFLU FLU AND CHEST CONGESTION WITHOUT PSE [Suspect]
     Indication: INFLUENZA
     Route: 048

REACTIONS (4)
  - HYPERSENSITIVITY [None]
  - OEDEMA PERIPHERAL [None]
  - RASH [None]
  - SWELLING FACE [None]
